FAERS Safety Report 5477758-6 (Version None)
Quarter: 2007Q4

REPORT INFORMATION
  Report Type: 
  Country: None (occurrence: None)
  Receive Date: 20071002
  Receipt Date: 20071002
  Transmission Date: 20080405
  Serious: Yes (Hospitalization, Other)
  Sender: FDA-Public Use
  Company Number: None

PATIENT
  Age: 39 Year
  Sex: Male
  Weight: 83.9154 kg

DRUGS (2)
  1. LISINOPRIL [Suspect]
     Indication: HYPERTENSION
     Dosage: 5MG ONCE DAILY PO
     Route: 048
     Dates: start: 20070922, end: 20070927
  2. PREDNISONE [Concomitant]

REACTIONS (5)
  - BLOOD POTASSIUM DECREASED [None]
  - DYSPNOEA [None]
  - FATIGUE [None]
  - MICTURITION URGENCY [None]
  - PALPITATIONS [None]
